FAERS Safety Report 15106921 (Version 2)
Quarter: 2020Q4

REPORT INFORMATION
  Report Type: Other
  Country: DE (occurrence: DE)
  Receive Date: 20180704
  Receipt Date: 20201031
  Transmission Date: 20210113
  Serious: Yes (Hospitalization)
  Sender: FDA-Public Use
  Company Number: DE-LUPIN PHARMACEUTICALS INC.-2018-04739

PATIENT
  Age: 69 Year
  Sex: Female
  Weight: 72 kg

DRUGS (3)
  1. SIMVASTATIN. [Suspect]
     Active Substance: SIMVASTATIN
     Indication: PRODUCT USED FOR UNKNOWN INDICATION
     Dosage: 20 MILLIGRAM, QD
     Route: 048
     Dates: end: 20170610
  2. THYRONAJOD [Concomitant]
     Active Substance: LEVOTHYROXINE SODIUM\POTASSIUM IODIDE
     Indication: PRODUCT USED FOR UNKNOWN INDICATION
     Dosage: 75 MCG, QD
     Route: 065
     Dates: end: 20170610
  3. HUMIRA [Suspect]
     Active Substance: ADALIMUMAB
     Indication: PSORIASIS
     Dosage: ACCORDING TO PRESCRIBING INFORMATION ()
     Route: 058
     Dates: start: 20170508

REACTIONS (3)
  - Emotional distress [Unknown]
  - Palmoplantar pustulosis [Not Recovered/Not Resolved]
  - Psoriasis [Not Recovered/Not Resolved]

NARRATIVE: CASE EVENT DATE: 2017
